FAERS Safety Report 23730896 (Version 1)
Quarter: 2024Q2

REPORT INFORMATION
  Report Type: Spontaneous
  Country: CA (occurrence: CA)
  Receive Date: 20240411
  Receipt Date: 20240411
  Transmission Date: 20240717
  Serious: Yes (Other)
  Sender: FDA-Public Use
  Company Number: CA-BAUSCH-BL-2024-005688

PATIENT
  Age: 9 Month
  Sex: Male
  Weight: 10 kg

DRUGS (2)
  1. DEXAMETHASONE [Suspect]
     Active Substance: DEXAMETHASONE
     Indication: Croup infectious
     Dosage: LIQUID INTRAARTICULAR
     Route: 048
  2. IBUPROFEN [Concomitant]
     Active Substance: IBUPROFEN
     Indication: Product used for unknown indication
     Route: 065

REACTIONS (8)
  - Floppy infant [Unknown]
  - Abdominal discomfort [Unknown]
  - Agitation [Unknown]
  - Disturbance in attention [Unknown]
  - Infant irritability [Unknown]
  - Restlessness [Unknown]
  - Screaming [Unknown]
  - Insomnia [Unknown]
